FAERS Safety Report 19926395 (Version 1)
Quarter: 2021Q4

REPORT INFORMATION
  Report Type: Spontaneous
  Country: US (occurrence: US)
  Receive Date: 20211006
  Receipt Date: 20211006
  Transmission Date: 20220303
  Serious: No
  Sender: FDA-Public Use
  Company Number: US-CELGENE-USA-20210907719

PATIENT
  Sex: Female
  Weight: 44.49 kg

DRUGS (3)
  1. REVLIMID [Suspect]
     Active Substance: LENALIDOMIDE
     Indication: Plasma cell myeloma
     Dosage: 10 MILLIGRAM
     Route: 048
     Dates: start: 20200903
  2. REVLIMID [Suspect]
     Active Substance: LENALIDOMIDE
     Dosage: 10 MILLIGRAM
     Route: 048
     Dates: start: 202105
  3. REVLIMID [Suspect]
     Active Substance: LENALIDOMIDE
     Dosage: 3.3333 MILLIGRAM
     Route: 048
     Dates: start: 202108

REACTIONS (5)
  - Malaise [Not Recovered/Not Resolved]
  - Nausea [Unknown]
  - Diarrhoea [Unknown]
  - Vision blurred [Unknown]
  - Pain [Unknown]
